FAERS Safety Report 9399881 (Version 1)
Quarter: 2013Q3

REPORT INFORMATION
  Report Type: Spontaneous
  Country: US (occurrence: US)
  Receive Date: 20130715
  Receipt Date: 20130715
  Transmission Date: 20140515
  Serious: Yes (Other)
  Sender: FDA-Public Use
  Company Number: US-JNJFOC-20130401558

PATIENT
  Sex: Male
  Weight: 59.8 kg

DRUGS (18)
  1. ZYTIGA [Suspect]
     Indication: PROSTATE CANCER
     Route: 048
  2. ZYTIGA [Suspect]
     Indication: PROSTATE CANCER
     Route: 048
  3. ZYTIGA [Suspect]
     Indication: PROSTATE CANCER
     Route: 048
     Dates: start: 20130306, end: 20130513
  4. ZYTIGA [Suspect]
     Indication: PROSTATE CANCER
     Route: 048
  5. ZYTIGA [Suspect]
     Indication: PROSTATE CANCER
     Dosage: 250 MG X 4 TABLETS
     Route: 048
     Dates: start: 20130224, end: 20130304
  6. AMIODARONE [Interacting]
     Indication: PRODUCT USED FOR UNKNOWN INDICATION
     Route: 048
     Dates: start: 20121120
  7. TYLENOL [Concomitant]
     Indication: PAIN
     Route: 065
     Dates: start: 20130222
  8. FOSAMAX [Concomitant]
     Indication: PRODUCT USED FOR UNKNOWN INDICATION
     Route: 048
     Dates: start: 20130422
  9. FIORICET [Concomitant]
     Indication: PRODUCT USED FOR UNKNOWN INDICATION
     Route: 048
     Dates: start: 20121111
  10. CALCIUM AND VITAMIN D [Concomitant]
     Indication: PRODUCT USED FOR UNKNOWN INDICATION
     Route: 048
     Dates: start: 20121120
  11. LOSARTAN [Concomitant]
     Indication: PRODUCT USED FOR UNKNOWN INDICATION
     Route: 048
     Dates: start: 20130402
  12. LOPRESSOR [Concomitant]
     Indication: PRODUCT USED FOR UNKNOWN INDICATION
     Route: 048
     Dates: start: 20130422
  13. REMERON [Concomitant]
     Indication: PRODUCT USED FOR UNKNOWN INDICATION
     Route: 048
     Dates: start: 20130422
  14. ALEVE [Concomitant]
     Indication: PRODUCT USED FOR UNKNOWN INDICATION
     Route: 048
     Dates: start: 20130222
  15. OMEPRAZOLE [Concomitant]
     Indication: PRODUCT USED FOR UNKNOWN INDICATION
     Route: 048
     Dates: start: 20121120
  16. PREDNISONE [Concomitant]
     Indication: PRODUCT USED FOR UNKNOWN INDICATION
     Route: 048
     Dates: start: 20130514
  17. CALCIUM CARBONATE [Concomitant]
     Indication: PRODUCT USED FOR UNKNOWN INDICATION
     Route: 048
     Dates: start: 20130426
  18. COMPAZINE [Concomitant]
     Indication: PRODUCT USED FOR UNKNOWN INDICATION
     Route: 048
     Dates: start: 20130402

REACTIONS (4)
  - Atrial fibrillation [Recovered/Resolved]
  - Drug interaction [Unknown]
  - Pneumonia [Unknown]
  - Oedema peripheral [Unknown]
